FAERS Safety Report 11863922 (Version 3)
Quarter: 2018Q2

REPORT INFORMATION
  Report Type: Report from Study
  Country: ZA (occurrence: ZA)
  Receive Date: 20151223
  Receipt Date: 20180402
  Transmission Date: 20180711
  Serious: Yes (Hospitalization, Other)
  Sender: FDA-Public Use
  Company Number: ZA-JNJFOC-20150818175

PATIENT
  Age: 35 Year
  Sex: Female
  Weight: 56.6 kg

DRUGS (4)
  1. TRUVADA [Concomitant]
     Active Substance: EMTRICITABINE\TENOFOVIR DISOPROXIL FUMARATE
     Indication: HIV INFECTION
     Dosage: 200/300 MG
     Route: 048
     Dates: start: 20060620, end: 20150715
  2. ATRIPLA [Concomitant]
     Active Substance: EFAVIRENZ\EMTRICITABINE\TENOFOVIR DISOPROXIL FUMARATE
     Indication: HIV INFECTION
     Dosage: 600/200/245 MG
     Route: 048
     Dates: start: 20150716
  3. TMC114 [Suspect]
     Active Substance: DARUNAVIR
     Indication: HIV INFECTION
     Dosage: MEDICATION KIT NUMBER : AO 3977/ AO 3978/ AO 3979
     Route: 048
     Dates: start: 20060620, end: 20150715
  4. RITONAVIR. [Suspect]
     Active Substance: RITONAVIR
     Indication: HIV INFECTION
     Dosage: MEDICATION KIT NUMBER : C47167/ C47168/C47169
     Route: 048
     Dates: start: 20060620, end: 20150715

REACTIONS (2)
  - Abortion threatened [Recovered/Resolved]
  - Pregnancy [Recovered/Resolved]

NARRATIVE: CASE EVENT DATE: 20150803
